FAERS Safety Report 14164796 (Version 1)
Quarter: 2017Q4

REPORT INFORMATION
  Report Type: Spontaneous
  Country: US (occurrence: US)
  Receive Date: 20171107
  Receipt Date: 20171107
  Transmission Date: 20180321
  Serious: No
  Sender: FDA-Public Use
  Company Number: US-LUPIN PHARMACEUTICALS INC.-E2B_00006390

PATIENT
  Age: 85 Year
  Sex: Female
  Weight: 52.16 kg

DRUGS (2)
  1. LISINOPRIL TABLETS USP, 5MG [Suspect]
     Active Substance: LISINOPRIL
     Indication: HYPERTENSION
     Dosage: 5 MG,QD,
     Route: 048
     Dates: start: 20161011
  2. DULOXETINE. [Concomitant]
     Active Substance: DULOXETINE
     Indication: PHIMOSIS
     Dosage: 60 MG,QD,
     Route: 048

REACTIONS (2)
  - Eye pruritus [Recovered/Resolved]
  - Pruritus [Recovered/Resolved]

NARRATIVE: CASE EVENT DATE: 20161013
